FAERS Safety Report 10468458 (Version 2)
Quarter: 2014Q3

REPORT INFORMATION
  Report Type: Spontaneous
  Country: US (occurrence: US)
  Receive Date: 20140922
  Receipt Date: 20140922
  Transmission Date: 20150326
  Serious: No
  Sender: FDA-Public Use
  Company Number: US-ALLERGAN-1317146US

PATIENT
  Sex: Male

DRUGS (2)
  1. LOTEMAX [Suspect]
     Active Substance: LOTEPREDNOL ETABONATE
     Indication: PRODUCT USED FOR UNKNOWN INDICATION
  2. LASTACAFT [Suspect]
     Active Substance: ALCAFTADINE
     Indication: SEASONAL ALLERGY
     Dosage: 2 GTT, QAM
     Route: 047

REACTIONS (1)
  - Dermatitis contact [Unknown]
